FAERS Safety Report 24026927 (Version 2)
Quarter: 2024Q3

REPORT INFORMATION
  Report Type: Report from Study
  Country: US (occurrence: US)
  Receive Date: 20240628
  Receipt Date: 20240710
  Transmission Date: 20241017
  Serious: No
  Sender: ROCHE
  Company Number: US-ROCHE-3564973

PATIENT
  Age: 81 Year
  Sex: Female

DRUGS (10)
  1. ALECENSA [Suspect]
     Active Substance: ALECTINIB HYDROCHLORIDE
     Indication: Lung neoplasm malignant
     Dosage: 150 MG CAPSULE(S)?TAKE 4 CAPSULE EVERY EVENG AND 4 CAPSULE EVERY EVENG
     Route: 048
     Dates: start: 20220225, end: 20230225
  2. ANASTROZOLE [Concomitant]
     Active Substance: ANASTROZOLE
  3. ATIVAN [Concomitant]
     Active Substance: LORAZEPAM
  4. MIRTAZAPINE [Concomitant]
     Active Substance: MIRTAZAPINE
  5. PANTOPRAZOLE [Concomitant]
     Active Substance: PANTOPRAZOLE
  6. SUCRALFATE [Concomitant]
     Active Substance: SUCRALFATE
  7. TRAMADOL HCL [Concomitant]
     Active Substance: TRAMADOL HYDROCHLORIDE
  8. ALBUTEROL SULFATE [Concomitant]
     Active Substance: ALBUTEROL SULFATE
  9. CYANOCOBALAMIN [Concomitant]
     Active Substance: CYANOCOBALAMIN
  10. LEVOTHYROXINE SODIUM [Concomitant]
     Active Substance: LEVOTHYROXINE SODIUM

REACTIONS (1)
  - General physical health deterioration [Unknown]
